FAERS Safety Report 6077804-5 (Version None)
Quarter: 2009Q1

REPORT INFORMATION
  Report Type: 
  Country: None (occurrence: None)
  Receive Date: 20090213
  Receipt Date: 20090203
  Transmission Date: 20090719
  Serious: Yes (Death)
  Sender: FDA-Public Use
  Company Number: JP-SANOFI-SYNTHELABO-A01200814350

PATIENT
  Sex: Male
  Weight: 75 kg

DRUGS (10)
  1. ELPLAT [Suspect]
     Indication: RECTAL CANCER
     Route: 041
     Dates: start: 20081023, end: 20081106
  2. BEVACIZUMAB [Suspect]
     Dosage: 150 MG
     Route: 065
     Dates: start: 20081106, end: 20081106
  3. PITRESSIN [Concomitant]
     Route: 041
     Dates: start: 20081109, end: 20081110
  4. SOLULACT [Concomitant]
     Dosage: 8 TIMES/DAY
     Route: 041
     Dates: start: 20081106, end: 20081110
  5. SIGMART [Concomitant]
     Route: 041
     Dates: start: 20081106, end: 20081110
  6. VASOLAN [Concomitant]
     Dosage: 5 MG IA
     Dates: start: 20081106, end: 20081110
  7. FLUOROURACIL [Concomitant]
     Indication: RECTAL CANCER
     Dosage: 500 MG BOLUS FOLLOWED BY 750 MG INFUSION
     Route: 042
     Dates: start: 20071018, end: 20071228
  8. FLUOROURACIL [Concomitant]
     Dosage: 700 MG BOLUS FOLLOWED BY 5000 MG INFUSION
     Route: 041
     Dates: start: 20081023, end: 20081023
  9. LEUCOVORIN CALCIUM [Concomitant]
     Indication: RECTAL CANCER
     Dosage: 150 MG
     Route: 041
     Dates: start: 20071018, end: 20071228
  10. LEUCOVORIN CALCIUM [Concomitant]
     Dosage: 350 MG
     Route: 041
     Dates: start: 20081023, end: 20081103

REACTIONS (6)
  - CARDIO-RESPIRATORY ARREST [None]
  - GASTROINTESTINAL NECROSIS [None]
  - LIVER ABSCESS [None]
  - PLATELET COUNT DECREASED [None]
  - SEPSIS [None]
  - WHITE BLOOD CELL COUNT DECREASED [None]
